FAERS Safety Report 19763683 (Version 2)
Quarter: 2021Q3

REPORT INFORMATION
  Report Type: Spontaneous
  Country: NL (occurrence: NL)
  Receive Date: 20210830
  Receipt Date: 20210903
  Transmission Date: 20211014
  Serious: Yes (Life-Threatening, Hospitalization, Other)
  Sender: FDA-Public Use
  Company Number: NL-MYLANLABS-2021M1055762

PATIENT
  Age: 63 Year
  Sex: Female
  Weight: 71.3 kg

DRUGS (27)
  1. PREDNISONE. [Suspect]
     Active Substance: PREDNISONE
     Indication: EOSINOPHILIC GRANULOMATOSIS WITH POLYANGIITIS
     Dosage: UNK (CAUTIOUSLY TAPERED)
  2. DUPIXENT [Suspect]
     Active Substance: DUPILUMAB
     Indication: ASTHMA
     Dosage: UNK
  3. TEMAZEPAM. [Concomitant]
     Active Substance: TEMAZEPAM
     Dosage: 10 MILLIGRAM
  4. FLUTICASONE. [Concomitant]
     Active Substance: FLUTICASONE
     Dosage: 1DROP EACH NOSTRIL
  5. PREDNISONE. [Suspect]
     Active Substance: PREDNISONE
     Dosage: 22.5 MG, QD
  6. ASCAL                              /00800002/ [Concomitant]
     Active Substance: CARBASPIRIN
     Dosage: FOR THE NEXT 21 DAYS 1DD
  7. ASCAL                              /00800002/ [Concomitant]
     Active Substance: CARBASPIRIN
     Dosage: 100MG 1DD1
  8. CLOPIDOGREL [Concomitant]
     Active Substance: CLOPIDOGREL BISULFATE
     Dosage: UNK
  9. FOSTER [Concomitant]
     Active Substance: BECLOMETHASONE\FORMOTEROL
     Dosage: 2DD INHALE 1 D
  10. DUPIXENT [Suspect]
     Active Substance: DUPILUMAB
     Indication: NASAL POLYPS
     Dosage: 300 MILLIGRAM
     Route: 058
     Dates: start: 20190826, end: 20191218
  11. OMEPRAZOLE. [Concomitant]
     Active Substance: OMEPRAZOLE
     Dosage: UNK,1DD1
  12. CICLESONIDE [Concomitant]
     Active Substance: CICLESONIDE
     Dosage: 1DD INHALE 1 D
  13. DUPIXENT [Suspect]
     Active Substance: DUPILUMAB
     Indication: EOSINOPHILIC GRANULOMATOSIS WITH POLYANGIITIS
     Dosage: UNK
     Dates: start: 20190911
  14. RISEDRONIC ACID [Concomitant]
     Active Substance: RISEDRONIC ACID
     Dosage: 1WD 35MG
  15. ITRACONAZOLE. [Concomitant]
     Active Substance: ITRACONAZOLE
     Dosage: 100 MG
  16. CALCIUM CARBONATE AND VITAMIN D [Concomitant]
     Active Substance: CALCIUM CARBONATE\VITAMIN D
     Dosage: 1DD1
  17. EZETIMIBE. [Concomitant]
     Active Substance: EZETIMIBE
     Indication: HYPERCHOLESTEROLAEMIA
     Dosage: 10 MILLIGRAM
     Route: 048
     Dates: start: 2016
  18. VENTOLIN [Concomitant]
     Active Substance: ALBUTEROL SULFATE
     Dosage: AS NEEDED 4 INHALATIONS A DAY
  19. PREDNISONE. [Suspect]
     Active Substance: PREDNISONE
     Dosage: 35 UNK
  20. INDACATEROL [Concomitant]
     Active Substance: INDACATEROL
     Dosage: 1DD
  21. PANTOPRAZOLE [Concomitant]
     Active Substance: PANTOPRAZOLE
     Dosage: UNK
  22. PREDNISONE. [Suspect]
     Active Substance: PREDNISONE
     Indication: ASTHMA
     Dosage: 32.5 MG, QD (PRE?ANTI?IL?5 TREATMENT)
  23. PREDNISONE. [Suspect]
     Active Substance: PREDNISONE
     Dosage: 30 MG, QD
  24. PREDNISONE. [Suspect]
     Active Substance: PREDNISONE
     Dosage: 32.2 MILLIGRAM, QD
  25. PREDNISONE. [Suspect]
     Active Substance: PREDNISONE
     Dosage: 20 MILLIGRAM, QD
  26. TRAMADOL. [Concomitant]
     Active Substance: TRAMADOL
     Dosage: 50 MG
  27. MOMETASONE [Concomitant]
     Active Substance: MOMETASONE
     Dosage: 1DD 50 MCG IN BOTH NOSTRILS

REACTIONS (21)
  - Rebound effect [Unknown]
  - Arteriosclerosis [Unknown]
  - Leukocytosis [Unknown]
  - Computerised tomogram thorax abnormal [Unknown]
  - Hemiplegia [Recovering/Resolving]
  - Eosinophilia [Recovering/Resolving]
  - Facial asymmetry [Unknown]
  - Dysarthria [Recovering/Resolving]
  - Eosinophilic granulomatosis with polyangiitis [Recovering/Resolving]
  - Cerebrovascular accident [Recovering/Resolving]
  - C-reactive protein increased [Unknown]
  - Epistaxis [Unknown]
  - Unintentional use for unapproved indication [Unknown]
  - Nervous system disorder [Recovering/Resolving]
  - Hemiparesis [Unknown]
  - Speech disorder [Recovering/Resolving]
  - Paraesthesia [Unknown]
  - Lung infiltration [Recovered/Resolved with Sequelae]
  - Headache [Unknown]
  - Drug abuse [Unknown]
  - Lung consolidation [Recovering/Resolving]

NARRATIVE: CASE EVENT DATE: 20190831
